FAERS Safety Report 7010442-6 (Version None)
Quarter: 2010Q3

REPORT INFORMATION
  Report Type: 
  Country: None (occurrence: None)
  Receive Date: 20100923
  Receipt Date: 20100808
  Transmission Date: 20110219
  Serious: Yes (Hospitalization, Other)
  Sender: FDA-Public Use
  Company Number: HN-PFIZER INC-2009244519

PATIENT
  Age: 67 Year
  Sex: Male

DRUGS (4)
  1. SUTENT [Suspect]
     Indication: RENAL CANCER
     Dosage: UNK
  2. DOFETILIDE [Concomitant]
  3. AMLODIPINE BESILATE [Concomitant]
  4. PERINDOPRIL [Concomitant]

REACTIONS (4)
  - HYPERTENSIVE CRISIS [None]
  - HYPOTENSION [None]
  - PNEUMONIA [None]
  - SKIN PAPILLOMA [None]
